FAERS Safety Report 25371074 (Version 1)
Quarter: 2025Q2

REPORT INFORMATION
  Report Type: Spontaneous
  Country: US (occurrence: US)
  Receive Date: 20250529
  Receipt Date: 20250529
  Transmission Date: 20250717
  Serious: No
  Sender: ELI LILLY AND COMPANY
  Company Number: US-ELI_LILLY_AND_COMPANY-US202505022851

PATIENT
  Age: 40 Year
  Sex: Female

DRUGS (3)
  1. TRULICITY [Suspect]
     Active Substance: DULAGLUTIDE
     Indication: Blood glucose
     Route: 065
     Dates: start: 20250517
  2. TRULICITY [Suspect]
     Active Substance: DULAGLUTIDE
     Indication: Blood glucagon
  3. TRULICITY [Suspect]
     Active Substance: DULAGLUTIDE
     Indication: Gastrointestinal disorder

REACTIONS (1)
  - Hypoglycaemia [Unknown]
